FAERS Safety Report 12186476 (Version 1)
Quarter: 2016Q1

REPORT INFORMATION
  Report Type: Report from Study
  Country: US (occurrence: US)
  Receive Date: 20160317
  Receipt Date: 20160317
  Transmission Date: 20160526
  Serious: Yes (Hospitalization)
  Sender: FDA-Public Use
  Company Number: US-CELGENE-USA-2016023787

PATIENT
  Age: 83 Year
  Sex: Male
  Weight: 60.5 kg

DRUGS (19)
  1. ONDANSETRON [Concomitant]
     Active Substance: ONDANSETRON
     Indication: NAUSEA
     Route: 048
     Dates: start: 20160114
  2. MAGNESIUM SULFATE. [Concomitant]
     Active Substance: MAGNESIUM SULFATE
     Indication: SUPPLEMENTATION THERAPY
     Route: 041
     Dates: start: 20160216, end: 20160218
  3. AUGMENTIN [Concomitant]
     Active Substance: AMOXICILLIN\CLAVULANATE POTASSIUM
     Indication: PNEUMONIA
     Route: 048
  4. OXYCODONE [Concomitant]
     Active Substance: OXYCODONE
     Indication: PAIN
     Route: 048
     Dates: start: 20160121
  5. PRBC [Concomitant]
     Indication: ANAEMIA
     Dosage: 2 UNITS
     Route: 041
     Dates: start: 20160128, end: 20160128
  6. OXYGEN. [Concomitant]
     Active Substance: OXYGEN
     Route: 045
  7. FLUDROCORTISONE [Concomitant]
     Active Substance: FLUDROCORTISONE
     Indication: SYNCOPE
     Route: 065
  8. CARBOPLATIN. [Suspect]
     Active Substance: CARBOPLATIN
     Indication: NON-SMALL CELL LUNG CANCER
     Dosage: AUC 6 MG*MIN/ML?DAY 1 OF EACH 21 DAY CYCLE
     Route: 041
     Dates: start: 20160101, end: 20160210
  9. ABRAXANE [Suspect]
     Active Substance: PACLITAXEL
     Dosage: DAYS 1,8,15 OF EACH 21 DAY CYCLE
     Route: 041
     Dates: start: 201602, end: 20160218
  10. VANCOMYCIN [Concomitant]
     Active Substance: VANCOMYCIN
     Indication: PNEUMONIA
     Route: 065
     Dates: start: 201603
  11. ONDANSETRON [Concomitant]
     Active Substance: ONDANSETRON
     Indication: VOMITING
     Route: 048
     Dates: start: 20160115, end: 20160218
  12. ABRAXANE [Suspect]
     Active Substance: PACLITAXEL
     Indication: NON-SMALL CELL LUNG CANCER
     Dosage: DAYS 1,8,15 OF EACH 21 DAY CYCLE
     Route: 041
     Dates: start: 20160101, end: 20160210
  13. ZOSYN [Concomitant]
     Active Substance: PIPERACILLIN SODIUM\TAZOBACTAM SODIUM
     Indication: PNEUMONIA
     Route: 041
     Dates: start: 201603
  14. CARBOPLATIN. [Suspect]
     Active Substance: CARBOPLATIN
     Dosage: AUC 6 MG*MIN/ML?DAY 1 OF EACH 21 DAY CYCLE
     Route: 041
     Dates: start: 201602, end: 20160218
  15. CARBOPLATIN. [Suspect]
     Active Substance: CARBOPLATIN
     Dosage: AUC 4.5 MG*MIN/ML?DAY 1 OF EACH 21 DAY CYCLE
     Route: 041
     Dates: start: 20160225
  16. HEPARIN [Concomitant]
     Active Substance: HEPARIN SODIUM
     Indication: PROPHYLAXIS
     Dosage: 5000U
     Route: 058
     Dates: start: 20160216, end: 20160218
  17. PANTOPRAZOLE [Concomitant]
     Active Substance: PANTOPRAZOLE SODIUM
     Indication: NAUSEA
     Route: 048
     Dates: start: 20160215, end: 20160218
  18. ABRAXANE [Suspect]
     Active Substance: PACLITAXEL
     Dosage: DAYS 1,8,15 OF EACH 21 DAY CYCLE
     Route: 041
     Dates: start: 20160225
  19. OXYGEN. [Concomitant]
     Active Substance: OXYGEN
     Indication: PRODUCT USED FOR UNKNOWN INDICATION
     Route: 045
     Dates: start: 20160302

REACTIONS (2)
  - Syncope [Recovered/Resolved]
  - Atrial fibrillation [Recovered/Resolved]

NARRATIVE: CASE EVENT DATE: 20160215
